FAERS Safety Report 7242048-8 (Version None)
Quarter: 2011Q1

REPORT INFORMATION
  Report Type: 
  Country: None (occurrence: None)
  Receive Date: 20110124
  Receipt Date: 20110113
  Transmission Date: 20110831
  Serious: Yes (Hospitalization)
  Sender: FDA-Public Use
  Company Number: US-BAXTER-2010BH030845

PATIENT
  Age: 64 Year
  Sex: Male
  Weight: 104 kg

DRUGS (9)
  1. VALSARTAN [Concomitant]
     Indication: HYPERTENSION
     Route: 048
  2. SYNTHROID [Concomitant]
     Indication: BLOOD THYROID STIMULATING HORMONE
     Route: 048
     Dates: start: 20100208
  3. COREG [Concomitant]
     Indication: HYPERTENSION
     Route: 048
     Dates: start: 20101004
  4. DIANEAL [Suspect]
     Indication: PERITONEAL DIALYSIS
     Route: 033
     Dates: start: 20100816
  5. DIANEAL [Suspect]
     Indication: PERITONEAL DIALYSIS
     Route: 033
     Dates: start: 20100816
  6. NEURONTIN [Concomitant]
     Indication: NEURALGIA
     Route: 048
  7. PLAVIX [Concomitant]
     Indication: THROMBOSIS PROPHYLAXIS
     Route: 048
     Dates: start: 20100208
  8. LISINOPRIL [Concomitant]
     Indication: ANGIOTENSIN CONVERTING ENZYME INCREASED
     Route: 048
     Dates: start: 20100208
  9. PHOSLO [Concomitant]
     Indication: ELECTROLYTE IMBALANCE
     Route: 048
     Dates: start: 20100611

REACTIONS (1)
  - IIIRD NERVE PARESIS [None]
